FAERS Safety Report 5456131-0 (Version None)
Quarter: 2007Q3

REPORT INFORMATION
  Report Type: 
  Country: None (occurrence: None)
  Receive Date: 20070918
  Receipt Date: 20070912
  Transmission Date: 20080115
  Serious: Yes (Other)
  Sender: FDA-Public Use
  Company Number: US-JNJFOC-20070901606

PATIENT
  Age: 46 Year
  Sex: Female

DRUGS (6)
  1. PREZISTA [Suspect]
     Indication: HIV INFECTION
     Route: 048
  2. VIDEX [Concomitant]
     Indication: HIV INFECTION
     Route: 065
  3. ZIAGEN [Concomitant]
     Indication: HIV INFECTION
     Route: 065
  4. LAMIVUDINE [Concomitant]
     Indication: HIV INFECTION
     Route: 065
  5. EMTRICITABINE [Concomitant]
     Indication: HIV INFECTION
     Route: 065
  6. FUZEON [Concomitant]
     Indication: HIV INFECTION
     Route: 065

REACTIONS (1)
  - ISCHAEMIC CEREBRAL INFARCTION [None]
